FAERS Safety Report 8214052-4 (Version None)
Quarter: 2012Q1

REPORT INFORMATION
  Report Type: 
  Country: None (occurrence: None)
  Receive Date: 20120314
  Receipt Date: 20120314
  Transmission Date: 20120608
  Serious: Yes (Death, Hospitalization)
  Sender: FDA-Public Use
  Company Number: None

PATIENT
  Age: 81 Year
  Sex: Male
  Weight: 78.9 kg

DRUGS (20)
  1. AZOPT [Concomitant]
  2. SPIRONDACTONE [Concomitant]
  3. HYDROCODONE [Concomitant]
  4. SPIRIVA [Concomitant]
  5. WARFARIN SODIUM [Concomitant]
  6. CA [Concomitant]
  7. ALBUTEROL [Concomitant]
  8. TRAVATAN [Concomitant]
  9. PREDNISONE [Concomitant]
  10. METOPRILOL [Concomitant]
  11. TRELSTAR [Concomitant]
  12. TORISEL [Suspect]
     Indication: PROSTATE CANCER
     Dosage: 25 MG QWEEK IV X1 ; 20 MG QWEEK IV X2
     Route: 042
     Dates: start: 20111201, end: 20111201
  13. TORISEL [Suspect]
     Indication: PROSTATE CANCER
     Dosage: 25 MG QWEEK IV X1 ; 20 MG QWEEK IV X2
     Route: 042
     Dates: start: 20111222, end: 20111229
  14. ALPHAGAN [Concomitant]
  15. LANTUS [Concomitant]
  16. M.V.I. [Concomitant]
  17. SEREVANT [Concomitant]
  18. NAMENDA [Concomitant]
  19. HUMALOG [Concomitant]
  20. PULMICORT [Concomitant]

REACTIONS (5)
  - PERIPHERAL ISCHAEMIA [None]
  - DISEASE COMPLICATION [None]
  - FOOT AMPUTATION [None]
  - GANGRENE [None]
  - RESPIRATORY DISTRESS [None]
